FAERS Safety Report 9351404 (Version 2)
Quarter: 2013Q3

REPORT INFORMATION
  Report Type: Spontaneous
  Country: IT (occurrence: IT)
  Receive Date: 20130617
  Receipt Date: 20130802
  Transmission Date: 20140515
  Serious: Yes (Hospitalization)
  Sender: FDA-Public Use
  Company Number: IT-TEVA-411375ISR

PATIENT
  Age: 76 Year
  Sex: Male

DRUGS (5)
  1. FLUOROURACILE TEVA 5G/100ML [Suspect]
     Indication: OESOPHAGEAL SQUAMOUS CELL CARCINOMA
     Dosage: 1450 MILLIGRAM DAILY;
     Dates: start: 20120208, end: 20120212
  2. PRONTO PLATAMINE 50MG/100ML [Suspect]
     Indication: OESOPHAGEAL SQUAMOUS CELL CARCINOMA
     Dosage: 145 MILLIGRAM DAILY;
     Route: 042
     Dates: start: 20120208, end: 20120208
  3. EMISTOP 2MG/ML [Concomitant]
     Dosage: 8 MILLIGRAM DAILY;
     Dates: start: 20120208, end: 20120208
  4. LASIX 20MG/2ML [Concomitant]
  5. DESAMETASONE FOSFATO BIOLOGICI ITALIA 8MG/2ML [Concomitant]
     Dosage: 8 MILLIGRAM DAILY;
     Dates: start: 20120208, end: 20120208

REACTIONS (3)
  - Erythema [Recovered/Resolved]
  - Dyspnoea [Recovered/Resolved]
  - Cough [Recovered/Resolved]
